FAERS Safety Report 23586510 (Version 1)
Quarter: 2024Q1

REPORT INFORMATION
  Report Type: Spontaneous
  Country: US (occurrence: None)
  Receive Date: 20240229
  Receipt Date: 20240229
  Transmission Date: 20240410
  Serious: No
  Sender: FDA-Public Use
  Company Number: None

PATIENT
  Age: 27 Year
  Sex: Female
  Weight: 79.83 kg

DRUGS (1)
  1. MIRENA [Suspect]
     Active Substance: LEVONORGESTREL
     Dates: start: 20231120, end: 20231120

REACTIONS (3)
  - Complication of device insertion [None]
  - Embedded device [None]
  - Therapy cessation [None]

NARRATIVE: CASE EVENT DATE: 20231120
